FAERS Safety Report 14675609 (Version 1)
Quarter: 2018Q1

REPORT INFORMATION
  Report Type: Spontaneous
  Country: US (occurrence: US)
  Receive Date: 20180323
  Receipt Date: 20180323
  Transmission Date: 20180509
  Serious: Yes (Death, Hospitalization)
  Sender: FDA-Public Use
  Company Number: US-ASTRAZENECA-2018SE35420

PATIENT
  Age: 29507 Day
  Sex: Female
  Weight: 74.4 kg

DRUGS (17)
  1. AZATHIOPRINE. [Concomitant]
     Active Substance: AZATHIOPRINE
     Indication: KIDNEY TRANSPLANT REJECTION
     Dates: start: 20180203
  2. BENAZEPRIL [Concomitant]
     Active Substance: BENAZEPRIL HYDROCHLORIDE
     Indication: HYPERTENSION
     Route: 048
     Dates: end: 20180203
  3. TRAZODONE [Concomitant]
     Active Substance: TRAZODONE HYDROCHLORIDE
     Indication: PAIN
     Dosage: AS REQUIRED
     Route: 048
     Dates: end: 20180203
  4. METOPROLOL. [Suspect]
     Active Substance: METOPROLOL
     Route: 065
  5. ASPIRIN. [Concomitant]
     Active Substance: ASPIRIN
     Indication: ANTICOAGULANT THERAPY
     Route: 048
     Dates: end: 20180203
  6. METOPROLOL. [Concomitant]
     Active Substance: METOPROLOL
     Route: 048
  7. PRAVASTATIN. [Concomitant]
     Active Substance: PRAVASTATIN
     Dosage: DAILY
     Route: 048
     Dates: end: 20180203
  8. NIFEDIPINE. [Concomitant]
     Active Substance: NIFEDIPINE
     Indication: HYPERTENSION
     Route: 048
     Dates: end: 20180203
  9. SEROQUEL [Suspect]
     Active Substance: QUETIAPINE FUMARATE
     Indication: SLEEP DISORDER
     Route: 048
  10. OLANZAPINE. [Concomitant]
     Active Substance: OLANZAPINE
     Indication: DEMENTIA ALZHEIMER^S TYPE
     Route: 048
     Dates: end: 20180203
  11. OLANZAPINE. [Concomitant]
     Active Substance: OLANZAPINE
     Indication: SLEEP DISORDER
     Route: 048
     Dates: end: 20180203
  12. CYCLOSPORINE. [Concomitant]
     Active Substance: CYCLOSPORINE
     Indication: KIDNEY TRANSPLANT REJECTION
     Route: 048
     Dates: end: 20180203
  13. SEROQUEL [Suspect]
     Active Substance: QUETIAPINE FUMARATE
     Indication: ILL-DEFINED DISORDER
     Route: 048
  14. TRAZODONE [Concomitant]
     Active Substance: TRAZODONE HYDROCHLORIDE
     Indication: SLEEP DISORDER
     Dosage: AS REQUIRED
     Route: 048
     Dates: end: 20180203
  15. ARICEPT [Concomitant]
     Active Substance: DONEPEZIL HYDROCHLORIDE
     Indication: DEMENTIA
     Route: 048
     Dates: end: 20180203
  16. VITAMIN D3 [Concomitant]
     Active Substance: CHOLECALCIFEROL
     Indication: ARTHROPATHY
     Dosage: 2000, ONCE A DAY, BY MOUTH
     Dates: end: 20180203
  17. A TO Z VITAMIN [Concomitant]
     Indication: PROPHYLAXIS
     Dosage: DAILY
     Route: 048
     Dates: end: 20180203

REACTIONS (6)
  - Pneumonia [Fatal]
  - Sepsis [Fatal]
  - Drug ineffective [Unknown]
  - Influenza [Fatal]
  - Urinary tract infection [Unknown]
  - Pleural effusion [Unknown]

NARRATIVE: CASE EVENT DATE: 20180126
